FAERS Safety Report 13035084 (Version 1)
Quarter: 2016Q4

REPORT INFORMATION
  Report Type: Spontaneous
  Country: US (occurrence: US)
  Receive Date: 20161216
  Receipt Date: 20161216
  Transmission Date: 20170207
  Serious: Yes (Other)
  Sender: FDA-Public Use
  Company Number: US-WEST-WARD PHARMACEUTICALS CORP.-US-H14001-16-02827

PATIENT
  Age: 66 Year
  Sex: Male
  Weight: 104.7 kg

DRUGS (3)
  1. IFOSFAMIDE. [Suspect]
     Active Substance: IFOSFAMIDE
     Indication: SARCOMA METASTATIC
     Route: 065
     Dates: start: 2014
  2. MESNA. [Suspect]
     Active Substance: MESNA
     Indication: SARCOMA METASTATIC
     Route: 065
     Dates: start: 2014
  3. DOXORUBICIN [Suspect]
     Active Substance: DOXORUBICIN
     Indication: SARCOMA METASTATIC
     Route: 065
     Dates: start: 2014

REACTIONS (3)
  - Sarcoma metastatic [Recovered/Resolved]
  - Disease progression [Recovered/Resolved]
  - Oedema peripheral [Recovered/Resolved]

NARRATIVE: CASE EVENT DATE: 2014
